FAERS Safety Report 7655125-4 (Version None)
Quarter: 2011Q3

REPORT INFORMATION
  Report Type: 
  Country: None (occurrence: None)
  Receive Date: 20110804
  Receipt Date: 20110728
  Transmission Date: 20111222
  Serious: Yes (Other)
  Sender: FDA-Public Use
  Company Number: US-JNJFOC-20110801404

PATIENT
  Age: 8 Decade
  Sex: Male

DRUGS (1)
  1. NUCYNTA [Suspect]
     Indication: PROCEDURAL PAIN
     Route: 048
     Dates: start: 20110101, end: 20110701

REACTIONS (2)
  - HALLUCINATION [None]
  - CONFUSIONAL STATE [None]
